FAERS Safety Report 22651371 (Version 7)
Quarter: 2024Q4

REPORT INFORMATION
  Report Type: Spontaneous
  Country: US (occurrence: US)
  Receive Date: 20230628
  Receipt Date: 20241224
  Transmission Date: 20250115
  Serious: Yes (Other)
  Sender: PFIZER
  Company Number: US-PFIZER INC-PV202300112312

PATIENT
  Age: 78 Year
  Sex: Female

DRUGS (4)
  1. IBRANCE [Suspect]
     Active Substance: PALBOCICLIB
     Indication: Breast cancer metastatic
     Dosage: TAKE 1 TABLET (100 MG TOTAL) DAILY FOR 21 DAYS THEN BY 7 DAYS OFF
     Route: 048
     Dates: start: 20221222
  2. IBRANCE [Suspect]
     Active Substance: PALBOCICLIB
     Dosage: 125 MG DAILY 21 OUT OF 28 DAYS
  3. GABAPENTIN [Concomitant]
     Active Substance: GABAPENTIN
     Dosage: TAKE 1 CAPSULE (400 MG TOTAL) BY MOUTH NIGHTLY
     Route: 048
  4. ALPRAZOLAM [Concomitant]
     Active Substance: ALPRAZOLAM
     Dosage: TAKE 0.5 TABLETS (0.5 MG TOTAL) BY MOUTH NIGHTLY
     Route: 048

REACTIONS (8)
  - Cataract [Unknown]
  - Eye haemorrhage [Unknown]
  - COVID-19 [Unknown]
  - Osteopenia [Unknown]
  - Asthenia [Unknown]
  - Urinary tract infection [Unknown]
  - Vomiting [Unknown]
  - Nausea [Unknown]
